FAERS Safety Report 9362598 (Version 1)
Quarter: 2013Q2

REPORT INFORMATION
  Report Type: Spontaneous
  Country: US (occurrence: US)
  Receive Date: 20130622
  Receipt Date: 20130622
  Transmission Date: 20140414
  Serious: Yes (Hospitalization)
  Sender: FDA-Public Use
  Company Number: US-US-EMD SERONO, INC.-7135056

PATIENT
  Age: 55 Year
  Sex: Female

DRUGS (3)
  1. REBIF [Suspect]
     Indication: MULTIPLE SCLEROSIS
     Route: 058
     Dates: start: 200504
  2. BACLOFEN [Concomitant]
     Indication: MUSCLE SPASTICITY
  3. ZANAFLEX [Concomitant]
     Indication: MUSCLE SPASTICITY

REACTIONS (2)
  - Injection site infection [Recovered/Resolved]
  - Injection site irritation [Not Recovered/Not Resolved]
